FAERS Safety Report 9625117 (Version 1)
Quarter: 2013Q4

REPORT INFORMATION
  Report Type: Spontaneous
  Country: US (occurrence: None)
  Receive Date: 20131015
  Receipt Date: 20131015
  Transmission Date: 20140711
  Serious: No
  Sender: FDA-Public Use
  Company Number: None

PATIENT
  Age: 46 Year
  Sex: 0

DRUGS (2)
  1. ZYRTEC [Suspect]
     Indication: INFECTION
  2. CELPHEXIN [Concomitant]

REACTIONS (3)
  - Feeling hot [None]
  - Pruritus [None]
  - Erythema [None]
